FAERS Safety Report 23409397 (Version 1)
Quarter: 2024Q1

REPORT INFORMATION
  Report Type: Spontaneous
  Country: US (occurrence: US)
  Receive Date: 20240117
  Receipt Date: 20240117
  Transmission Date: 20240410
  Serious: Yes (Other)
  Sender: FDA-Public Use
  Company Number: US-FMCRTG-FMC-2312-001473

PATIENT
  Sex: Male
  Weight: 107 kg

DRUGS (4)
  1. DELFLEX [Suspect]
     Active Substance: CALCIUM CHLORIDE\DEXTROSE\MAGNESIUM CHLORIDE\SODIUM CHLORIDE\SODIUM LACTATE
     Indication: End stage renal disease
     Dosage: CCPD, 7X WEEK, EDW 107 (KG) CA 2.5 (MEQ/L) MG 0.5 (MEQ/L), DEXTROSE 1.5; 2.5; 4.25 % ICODEXTRIN (EXT
     Route: 033
  2. DELFLEX WITH DEXTROSE 2.5% LOW MAGNESIUM LOW CALCIUM [Suspect]
     Active Substance: CALCIUM CHLORIDE\DEXTROSE\MAGNESIUM CHLORIDE\SODIUM CHLORIDE\SODIUM LACTATE
     Indication: End stage renal disease
     Dosage: CCPD, 7X WEEK, EDW 107 (KG) CA 2.5 (MEQ/L) MG 0.5 (MEQ/L), DEXTROSE 1.5; 2.5; 4.25 % ICODEXTRIN (EXT
     Route: 033
  3. DELFLEX WITH DEXTROSE 4.25% LOW MAGNESIUM LOW CALCIUM [Suspect]
     Active Substance: CALCIUM CHLORIDE\DEXTROSE\MAGNESIUM CHLORIDE\SODIUM CHLORIDE\SODIUM LACTATE
     Indication: End stage renal disease
     Dosage: CCPD, 7X WEEK, EDW 107 (KG) CA 2.5 (MEQ/L) MG 0.5 (MEQ/L), DEXTROSE 1.5; 2.5; 4.25 % ICODEXTRIN (EXT
     Route: 033
  4. ICODEXTRIN [Suspect]
     Active Substance: ICODEXTRIN
     Indication: End stage renal disease

REACTIONS (3)
  - Peritonitis bacterial [Recovering/Resolving]
  - Peritonitis [Recovering/Resolving]
  - Oedema peripheral [Recovering/Resolving]

NARRATIVE: CASE EVENT DATE: 20230815
